FAERS Safety Report 14755020 (Version 5)
Quarter: 2019Q2

REPORT INFORMATION
  Report Type: Report from Study
  Country: US (occurrence: US)
  Receive Date: 20180413
  Receipt Date: 20190503
  Transmission Date: 20190711
  Serious: Yes (Hospitalization, Other)
  Sender: FDA-Public Use
  Company Number: US-TAKEDA-2018TUS009042

PATIENT
  Sex: Male

DRUGS (3)
  1. PONATINIB [Suspect]
     Active Substance: PONATINIB
     Dosage: 30 MILLIGRAM, QD
     Route: 048
  2. PONATINIB [Suspect]
     Active Substance: PONATINIB
     Indication: ACUTE LYMPHOCYTIC LEUKAEMIA
     Dosage: 45 MG, QD
     Route: 048
     Dates: start: 201711
  3. PONATINIB [Suspect]
     Active Substance: PONATINIB
     Dosage: 15 MILLIGRAM, QD
     Route: 048

REACTIONS (38)
  - Cachexia [Unknown]
  - Bladder wall calcification [Unknown]
  - Cystitis [Unknown]
  - Vitamin D deficiency [Unknown]
  - Restlessness [Unknown]
  - Hypertension [Unknown]
  - Dry mouth [Recovering/Resolving]
  - Asthenia [Unknown]
  - Pain [Unknown]
  - Gastrooesophageal reflux disease [Unknown]
  - Lip dry [Unknown]
  - Anxiety [Unknown]
  - Hypogammaglobulinaemia [Unknown]
  - Malaise [Unknown]
  - Fatigue [Unknown]
  - Hypokalaemia [Unknown]
  - Anaemia [Unknown]
  - Graft versus host disease [Unknown]
  - Malnutrition [Unknown]
  - Hypothyroidism [Unknown]
  - Hypomagnesaemia [Unknown]
  - Enuresis [Unknown]
  - Haematoma [Unknown]
  - Bladder hypertrophy [Unknown]
  - Hydronephrosis [Unknown]
  - Post procedural complication [Unknown]
  - Escherichia sepsis [Unknown]
  - Micturition urgency [Unknown]
  - Urinary tract disorder [Unknown]
  - Oral pain [Unknown]
  - BK virus infection [Unknown]
  - Urinary incontinence [Unknown]
  - Neuropathy peripheral [Unknown]
  - Vision blurred [Recovering/Resolving]
  - Acute lymphocytic leukaemia recurrent [Unknown]
  - Cystitis haemorrhagic [Unknown]
  - Dry skin [Unknown]
  - Skin exfoliation [Unknown]
